FAERS Safety Report 4280365-4 (Version None)
Quarter: 2004Q1

REPORT INFORMATION
  Report Type: 
  Country: None (occurrence: None)
  Receive Date: 20040127
  Receipt Date: 20040113
  Transmission Date: 20041129
  Serious: Yes (Other)
  Sender: FDA-Public Use
  Company Number: S04-FRA-00165-01

PATIENT
  Age: 54 Year
  Sex: Female

DRUGS (3)
  1. SEROPLEX (ESCITALOPRAM) [Suspect]
     Dosage: 5 MG QD PO
     Route: 048
     Dates: start: 20030325
  2. SEROPLEX (ESCITALOPRAM) [Suspect]
     Dosage: 10 MG QD PO
     Route: 048
  3. ALDACTAZINE [Concomitant]

REACTIONS (1)
  - HYPOKALAEMIA [None]
